FAERS Safety Report 8561571-7 (Version None)
Quarter: 2012Q3

REPORT INFORMATION
  Report Type: 
  Country: None (occurrence: None)
  Receive Date: 20120802
  Receipt Date: 20120726
  Transmission Date: 20120928
  Serious: Yes (Hospitalization)
  Sender: FDA-Public Use
  Company Number: JP-VERTEX PHARMACEUTICALS INC.-AE-2012-008812

PATIENT
  Age: 67 Year
  Sex: Male

DRUGS (9)
  1. BISULASE [Concomitant]
     Route: 048
     Dates: start: 20120417, end: 20120605
  2. OMEPRAZOLE [Concomitant]
     Route: 048
     Dates: start: 20120417, end: 20120605
  3. GASMOTIN [Concomitant]
     Route: 048
     Dates: start: 20120417, end: 20120605
  4. TELAVIC (TELAPREVIR) [Suspect]
     Indication: HEPATITIS C
     Route: 048
     Dates: start: 20120405, end: 20120529
  5. CELESTAMINE TAB [Concomitant]
     Route: 048
     Dates: start: 20120512
  6. REBETOL [Concomitant]
     Indication: HEPATITIS C
     Route: 048
     Dates: start: 20120405, end: 20120605
  7. PROMAC [Concomitant]
     Route: 048
     Dates: start: 20120417, end: 20120605
  8. PEGINTERFERON ALFA-2B [Concomitant]
     Route: 058
     Dates: start: 20120405, end: 20120605
  9. ALLOPURINOL [Concomitant]
     Route: 048
     Dates: start: 20120508, end: 20120605

REACTIONS (1)
  - DRUG ERUPTION [None]
